FAERS Safety Report 8104016-3 (Version None)
Quarter: 2012Q1

REPORT INFORMATION
  Report Type: 
  Country: None (occurrence: None)
  Receive Date: 20120130
  Receipt Date: 20120113
  Transmission Date: 20120608
  Serious: Yes (Life-Threatening, Hospitalization)
  Sender: FDA-Public Use
  Company Number: B0775462A

PATIENT
  Sex: Female

DRUGS (2)
  1. CEFUROXIME SODIUM [Suspect]
     Indication: PYREXIA
     Dosage: 1.5 GRAM(S)/INTRAVENOUS
     Route: 042
     Dates: start: 20120107
  2. METOCLOPRAMIDE HCL [Suspect]
     Indication: NAUSEA
     Dosage: 10 MG/INTRAVENOUS
     Route: 042
     Dates: start: 20120107, end: 20120107

REACTIONS (6)
  - COUGH [None]
  - OXYGEN SATURATION DECREASED [None]
  - GASTROINTESTINAL DISORDER [None]
  - UNEVALUABLE EVENT [None]
  - ANAPHYLACTIC SHOCK [None]
  - SEPSIS [None]
